FAERS Safety Report 4790065-X (Version None)
Quarter: 2005Q4

REPORT INFORMATION
  Report Type: 
  Country: None (occurrence: None)
  Receive Date: 20051006
  Receipt Date: 20050928
  Transmission Date: 20060501
  Serious: Yes (Other)
  Sender: FDA-Public Use
  Company Number: US-JNJFOC-20051000049

PATIENT
  Sex: Female
  Weight: 58.06 kg

DRUGS (5)
  1. TOPAMAX [Suspect]
     Indication: MIGRAINE PROPHYLAXIS
     Route: 048
  2. NORTRIPTYLINE HCL [Concomitant]
     Indication: MIGRAINE
     Route: 048
  3. ZANAFLEX [Concomitant]
     Route: 048
  4. AMBIEN [Concomitant]
     Indication: SLEEP DISORDER THERAPY
     Route: 048
  5. MECLOFENAMATE [Concomitant]
     Indication: MIGRAINE
     Route: 048

REACTIONS (3)
  - ANTINUCLEAR ANTIBODY POSITIVE [None]
  - ARTHRALGIA [None]
  - INTERNATIONAL NORMALISED RATIO INCREASED [None]
